FAERS Safety Report 14778745 (Version 1)
Quarter: 2018Q2

REPORT INFORMATION
  Report Type: Spontaneous
  Country: US (occurrence: US)
  Receive Date: 20180419
  Receipt Date: 20180419
  Transmission Date: 20180711
  Serious: No
  Sender: FDA-Public Use
  Company Number: US-TEVA-2018-US-882664

PATIENT
  Age: 25 Year
  Sex: Female

DRUGS (2)
  1. CLINDAMYCIN. [Suspect]
     Active Substance: CLINDAMYCIN
     Route: 065
  2. AMPICILLIN [Suspect]
     Active Substance: AMPICILLIN
     Route: 065

REACTIONS (1)
  - Maternal exposure during delivery [Unknown]
